FAERS Safety Report 6474310-0 (Version None)
Quarter: 2009Q4

REPORT INFORMATION
  Report Type: 
  Country: None (occurrence: None)
  Receive Date: 20091204
  Receipt Date: 20091202
  Transmission Date: 20100525
  Serious: Yes (Life-Threatening, Hospitalization)
  Sender: FDA-Public Use
  Company Number: PHHY2009AU48610

PATIENT
  Sex: Male

DRUGS (4)
  1. CLOZARIL [Suspect]
     Indication: SCHIZOPHRENIA
     Dosage: 650 MG, UNK
     Route: 065
     Dates: start: 19930517
  2. CLOZARIL [Suspect]
     Dosage: 600 MG, UNK
     Route: 065
     Dates: start: 19930523
  3. OLANZAPINE [Concomitant]
     Indication: PSYCHOTIC DISORDER
     Dosage: 10 MG AT NIGHT
     Route: 065
     Dates: start: 20091015
  4. WARFARIN SODIUM [Concomitant]
     Indication: DEEP VEIN THROMBOSIS
     Dosage: 3 MG

REACTIONS (6)
  - BLADDER OBSTRUCTION [None]
  - CARDIAC TAMPONADE [None]
  - DYSPNOEA [None]
  - INCONTINENCE [None]
  - PERICARDITIS [None]
  - PYREXIA [None]
